FAERS Safety Report 8734677 (Version 4)
Quarter: 2013Q2

REPORT INFORMATION
  Report Type: Report from Study
  Country: JP (occurrence: JP)
  Receive Date: 20120821
  Receipt Date: 20130628
  Transmission Date: 20140414
  Serious: Yes (Hospitalization, Other)
  Sender: FDA-Public Use
  Company Number: PHHY2012JP071816

PATIENT
  Age: 24 Year
  Sex: Male

DRUGS (7)
  1. FTY 720 [Suspect]
     Indication: MULTIPLE SCLEROSIS
     Dosage: 0.5 MG, QD
     Route: 048
     Dates: start: 20120123, end: 20120803
  2. FTY 720 [Suspect]
     Dosage: 0.5 MG/5 DAYS/WEEK
     Route: 048
     Dates: start: 20120830
  3. LANSOPRAZOLE [Concomitant]
     Dosage: 15 MG, UNK
     Route: 048
     Dates: start: 20111216, end: 20120125
  4. MEILAX [Concomitant]
     Dosage: 1 MG, UNK
     Route: 048
     Dates: start: 20111219, end: 20120425
  5. LYRICA [Concomitant]
     Dosage: 150 MG, UNK
     Route: 048
     Dates: start: 20111221, end: 20120521
  6. DEPAKENE-R [Concomitant]
     Dosage: 400 MG, UNK
     Route: 048
     Dates: start: 20111226, end: 20120207
  7. RIVOTRIL [Concomitant]
     Dosage: 0.5 MG, UNK
     Route: 048
     Dates: start: 20120607

REACTIONS (9)
  - White blood cell count decreased [Recovered/Resolved]
  - Lymphocyte count decreased [Recovered/Resolved]
  - Blood alkaline phosphatase increased [Not Recovered/Not Resolved]
  - Blood alkaline phosphatase abnormal [Recovered/Resolved]
  - Blood bilirubin increased [Recovered/Resolved]
  - Alanine aminotransferase increased [Recovered/Resolved]
  - Gamma-glutamyltransferase increased [Not Recovered/Not Resolved]
  - Gamma-glutamyltransferase abnormal [Recovered/Resolved]
  - Bradycardia [Recovered/Resolved]
